FAERS Safety Report 20426320 (Version 1)
Quarter: 2022Q1

REPORT INFORMATION
  Report Type: Report from Study
  Country: US (occurrence: US)
  Receive Date: 20220204
  Receipt Date: 20220204
  Transmission Date: 20220423
  Serious: No
  Sender: FDA-Public Use
  Company Number: US-EXELIXIS-CABO-21041842

PATIENT
  Age: 54 Year
  Sex: Male

DRUGS (14)
  1. CABOMETYX [Suspect]
     Active Substance: CABOZANTINIB S-MALATE
     Indication: Renal cancer
     Dosage: 40 MG, QD
     Route: 048
     Dates: start: 20210401
  2. DESCOVY [Concomitant]
     Active Substance: EMTRICITABINE\TENOFOVIR ALAFENAMIDE FUMARATE
     Dosage: UNK
     Dates: start: 20210426
  3. VIRACEPT [Concomitant]
     Active Substance: NELFINAVIR MESYLATE
     Dosage: UNK
     Dates: start: 20210408
  4. TENOFOVEK [Concomitant]
     Dosage: UNK
     Dates: start: 20210506
  5. VALACYCLOVIR [Concomitant]
     Active Substance: VALACYCLOVIR HYDROCHLORIDE
     Dosage: UNK
     Dates: start: 20210517
  6. LIDO/PRILOCN CRE [Concomitant]
     Dosage: UNK
     Dates: start: 20210526
  7. SYMPROIC [Concomitant]
     Active Substance: NALDEMEDINE
     Dosage: UNK
     Dates: start: 20210403
  8. Triamcinolon [Concomitant]
     Dosage: UNK
  9. TYLENOL [Concomitant]
     Active Substance: ACETAMINOPHEN
     Dosage: UNK
     Dates: start: 20210331
  10. ELIQUIS [Concomitant]
     Active Substance: APIXABAN
     Dosage: UNK
     Dates: start: 20210507
  11. MS CONTIN [Concomitant]
     Active Substance: MORPHINE SULFATE
     Dosage: UNK
     Dates: start: 20210331
  12. HYDROXYZINE HYDROCHLORIDE [Concomitant]
     Active Substance: HYDROXYZINE HYDROCHLORIDE
  13. VITAMINS [Concomitant]
     Active Substance: VITAMINS
  14. EMTRICITABINE\TENOFOVIR [Concomitant]
     Active Substance: EMTRICITABINE\TENOFOVIR

REACTIONS (4)
  - Rash pruritic [Unknown]
  - Pain [Unknown]
  - Abdominal pain upper [Unknown]
  - Rash [Unknown]

NARRATIVE: CASE EVENT DATE: 20210719
